FAERS Safety Report 20177571 (Version 2)
Quarter: 2022Q1

REPORT INFORMATION
  Report Type: Spontaneous
  Country: CA (occurrence: CA)
  Receive Date: 20211213
  Receipt Date: 20220216
  Transmission Date: 20220423
  Serious: Yes (Death)
  Sender: FDA-Public Use
  Company Number: CA-PFIZER INC-2018267825

PATIENT
  Age: 70 Year
  Sex: Male

DRUGS (5)
  1. XELJANZ [Suspect]
     Active Substance: TOFACITINIB CITRATE
     Indication: Rheumatoid arthritis
     Dosage: 0.5 DF, 1X/DAY (1/2 PILL (2.5MG) OD FOR 3 DAYS)
     Route: 048
     Dates: start: 20180628, end: 20180630
  2. XELJANZ [Suspect]
     Active Substance: TOFACITINIB CITRATE
     Dosage: 1 DF, 1X/DAY (1 PILL (5MG) OD FOR 3 DAYS)
     Route: 048
     Dates: start: 2018, end: 2018
  3. XELJANZ [Suspect]
     Active Substance: TOFACITINIB CITRATE
     Dosage: 1.5 DF, 1X/DAY (1 1/2 PILL (7.5MG) OD FOR 3 DAYS)
     Route: 048
     Dates: start: 2018, end: 2018
  4. XELJANZ [Suspect]
     Active Substance: TOFACITINIB CITRATE
     Dosage: 5 MG, 2X/DAY
     Route: 048
     Dates: start: 2018
  5. PLAQUENIL [Concomitant]
     Active Substance: HYDROXYCHLOROQUINE SULFATE
     Dosage: UNK

REACTIONS (8)
  - Arteriosclerosis [Fatal]
  - Cardiac valve disease [Fatal]
  - Wrong technique in product usage process [Unknown]
  - Product use issue [Unknown]
  - Diarrhoea [Recovered/Resolved]
  - Peripheral swelling [Recovered/Resolved]
  - Acne [Recovered/Resolved]
  - Pain [Recovered/Resolved]

NARRATIVE: CASE EVENT DATE: 20180101
